FAERS Safety Report 14580750 (Version 2)
Quarter: 2018Q2

REPORT INFORMATION
  Report Type: Spontaneous
  Country: US (occurrence: US)
  Receive Date: 20180228
  Receipt Date: 20180601
  Transmission Date: 20180711
  Serious: Yes (Other)
  Sender: FDA-Public Use
  Company Number: US-ASTRAZENECA-2018SE23280

PATIENT
  Age: 21572 Day
  Sex: Female
  Weight: 97.1 kg

DRUGS (35)
  1. NEURONTIN [Concomitant]
     Active Substance: GABAPENTIN
     Dates: start: 2009, end: 2018
  2. ZOCOR [Concomitant]
     Active Substance: SIMVASTATIN
     Dates: start: 2004, end: 2006
  3. EPIPEN [Concomitant]
     Active Substance: EPINEPHRINE
     Dates: start: 2010
  4. IRON [Concomitant]
     Active Substance: IRON
     Dates: start: 2013, end: 2016
  5. NIFEDIAC CC [Concomitant]
     Active Substance: NIFEDIPINE
     Route: 048
     Dates: start: 20160127
  6. CENTRUM SILVER [Concomitant]
     Active Substance: MINERALS\VITAMINS
     Dates: start: 2002
  7. NEXIUM [Suspect]
     Active Substance: ESOMEPRAZOLE MAGNESIUM
     Indication: GASTROOESOPHAGEAL REFLUX DISEASE
     Dosage: 40 MG
     Route: 048
     Dates: start: 2004, end: 2017
  8. NEXIUM [Suspect]
     Active Substance: ESOMEPRAZOLE MAGNESIUM
     Indication: GASTROOESOPHAGEAL REFLUX DISEASE
     Route: 048
     Dates: start: 20040615
  9. PRILOSEC [Suspect]
     Active Substance: OMEPRAZOLE MAGNESIUM
     Indication: GASTROOESOPHAGEAL REFLUX DISEASE
     Dosage: GENERIC, 40 MG
     Route: 065
     Dates: start: 2017
  10. PROTONIX [Suspect]
     Active Substance: PANTOPRAZOLE SODIUM
     Indication: GASTROOESOPHAGEAL REFLUX DISEASE
     Dosage: 40 MG
     Route: 065
     Dates: start: 20170401, end: 20170910
  11. GLIPIZIDE. [Concomitant]
     Active Substance: GLIPIZIDE
     Dates: start: 2004, end: 2016
  12. GLIPIZIDE. [Concomitant]
     Active Substance: GLIPIZIDE
     Route: 048
     Dates: start: 20110516
  13. RANITIDINE. [Concomitant]
     Active Substance: RANITIDINE
     Route: 048
     Dates: start: 20100905
  14. MICARDIS HCT [Concomitant]
     Active Substance: HYDROCHLOROTHIAZIDE\TELMISARTAN
     Dates: start: 2008
  15. FISH OIL [Concomitant]
     Active Substance: FISH OIL
     Dates: start: 2008
  16. DIPHENHYDRAMINE HYDROCHLORIDE. [Concomitant]
     Active Substance: DIPHENHYDRAMINE HYDROCHLORIDE
     Dates: start: 2008
  17. BAYER ASPIRIN [Concomitant]
     Active Substance: ASPIRIN
     Indication: CARDIAC DISORDER
     Dates: start: 2013
  18. VITAMIN D [Concomitant]
     Active Substance: CHOLECALCIFEROL
     Dates: start: 2017
  19. GARLIC. [Concomitant]
     Active Substance: GARLIC
     Dates: start: 1998
  20. JANUVIA [Concomitant]
     Active Substance: SITAGLIPTIN PHOSPHATE
     Dates: start: 201712
  21. NORVASC [Concomitant]
     Active Substance: AMLODIPINE BESYLATE
     Dates: start: 201712
  22. TRAMADOL HYDROCHLORIDE. [Concomitant]
     Active Substance: TRAMADOL HYDROCHLORIDE
     Dates: start: 2014
  23. PEPTO-BISMOL [Concomitant]
     Active Substance: BISMUTH SUBSALICYLATE
     Dates: start: 2006
  24. TRULICITY [Concomitant]
     Active Substance: DULAGLUTIDE
     Dates: start: 201712
  25. ZINC. [Concomitant]
     Active Substance: ZINC
     Dates: start: 2006
  26. NEXIUM [Suspect]
     Active Substance: ESOMEPRAZOLE MAGNESIUM
     Indication: GASTROOESOPHAGEAL REFLUX DISEASE
     Dosage: 40.0MG UNKNOWN
     Route: 048
     Dates: start: 20170428
  27. PRILOSEC [Suspect]
     Active Substance: OMEPRAZOLE MAGNESIUM
     Indication: GASTROOESOPHAGEAL REFLUX DISEASE
     Route: 048
     Dates: start: 20170705
  28. ATENOLOL. [Concomitant]
     Active Substance: ATENOLOL
     Route: 048
     Dates: start: 20110516
  29. MELOXICAM. [Concomitant]
     Active Substance: MELOXICAM
     Route: 048
     Dates: start: 2009
  30. NIFEDIAC CC [Concomitant]
     Active Substance: NIFEDIPINE
     Dates: start: 2007, end: 2012
  31. METFORMIN [Concomitant]
     Active Substance: METFORMIN HYDROCHLORIDE
     Route: 048
     Dates: start: 2004, end: 201712
  32. METFORMIN [Concomitant]
     Active Substance: METFORMIN HYDROCHLORIDE
     Route: 048
     Dates: start: 20110516
  33. METANX [Concomitant]
     Active Substance: LEVOMEFOLATE CALCIUM\METHYLCOBALAMIN\PYRIDOXAL PHOSPHATE ANHYDROUS
     Dosage: TWO TIMES A DAY
     Route: 048
     Dates: start: 20160127
  34. SIMVASTATIN. [Concomitant]
     Active Substance: SIMVASTATIN
     Route: 048
     Dates: start: 20110519
  35. ATENOLOL. [Concomitant]
     Active Substance: ATENOLOL
     Dates: start: 2004, end: 2016

REACTIONS (7)
  - Type 2 diabetes mellitus [Unknown]
  - Diabetic nephropathy [Unknown]
  - Essential hypertension [Unknown]
  - Chronic kidney disease [Unknown]
  - Constipation [Unknown]
  - Dyslipidaemia [Unknown]
  - Type V hyperlipidaemia [Unknown]

NARRATIVE: CASE EVENT DATE: 20101122
